FAERS Safety Report 25731235 (Version 1)
Quarter: 2025Q3

REPORT INFORMATION
  Report Type: Spontaneous
  Country: EU (occurrence: EU)
  Receive Date: 20250827
  Receipt Date: 20250827
  Transmission Date: 20251021
  Serious: Yes (Hospitalization, Other)
  Sender: ASTELLAS
  Company Number: EU-ASTELLAS-2025-AER-047001

PATIENT
  Age: 44 Year
  Sex: Male
  Weight: 45.0 kg

DRUGS (4)
  1. ISAVUCONAZONIUM SULFATE [Suspect]
     Active Substance: ISAVUCONAZONIUM SULFATE
     Indication: Fungal infection
     Route: 042
     Dates: end: 20250727
  2. RIFATER [Suspect]
     Active Substance: ISONIAZID\PYRAZINAMIDE\RIFAMPIN
     Indication: Tuberculosis
     Dosage: FORM, QD
     Route: 048
     Dates: start: 20250703, end: 20250726
  3. MEROPENEM [Suspect]
     Active Substance: MEROPENEM
     Indication: Tuberculosis
     Route: 042
     Dates: start: 20250720, end: 20250727
  4. LINEZOLID [Suspect]
     Active Substance: LINEZOLID
     Indication: Tuberculosis
     Route: 042
     Dates: start: 20250720, end: 20250727

REACTIONS (2)
  - Hepatic cytolysis [Recovering/Resolving]
  - Off label use [Unknown]

NARRATIVE: CASE EVENT DATE: 20250720
